FAERS Safety Report 6263631-2 (Version None)
Quarter: 2009Q3

REPORT INFORMATION
  Report Type: 
  Country: None (occurrence: None)
  Receive Date: 20090710
  Receipt Date: 20090629
  Transmission Date: 20100115
  Serious: Yes (Hospitalization, Other)
  Sender: FDA-Public Use
  Company Number: FR-ROCHE-630311

PATIENT
  Sex: Female
  Weight: 59 kg

DRUGS (6)
  1. PEGASYS [Suspect]
     Indication: HEPATITIS C
     Route: 058
     Dates: start: 20081226, end: 20090323
  2. PEGASYS [Suspect]
     Route: 058
     Dates: start: 20081001
  3. REBETOL [Suspect]
     Indication: HEPATITIS C
     Route: 048
  4. NEXIUM [Concomitant]
     Indication: STEROID THERAPY
     Route: 048
     Dates: start: 20090305, end: 20090316
  5. PRIMPERAN [Concomitant]
     Indication: NAUSEA
     Route: 042
     Dates: start: 20090306, end: 20090310
  6. LYRICA [Concomitant]
     Route: 048
     Dates: start: 20090526

REACTIONS (3)
  - FACIAL PALSY [None]
  - HERPES ZOSTER OTICUS [None]
  - VERTIGO [None]
